FAERS Safety Report 5700766-4 (Version None)
Quarter: 2008Q2

REPORT INFORMATION
  Report Type: 
  Country: None (occurrence: None)
  Receive Date: 20080410
  Receipt Date: 20080407
  Transmission Date: 20081010
  Serious: Yes (Other)
  Sender: FDA-Public Use
  Company Number: US-ASTRAZENECA-2008UW06976

PATIENT
  Age: 74 Year
  Sex: Female
  Weight: 65.8 kg

DRUGS (4)
  1. ARIMIDEX [Suspect]
     Indication: BREAST CANCER
     Route: 048
     Dates: start: 20080201
  2. LITHIUM CARBONATE [Concomitant]
  3. XANAX [Concomitant]
  4. ANTIBIOTIC [Concomitant]

REACTIONS (5)
  - ANOREXIA [None]
  - BREAST SWELLING [None]
  - DEPRESSION [None]
  - INCISION SITE COMPLICATION [None]
  - WEIGHT DECREASED [None]
